FAERS Safety Report 10575295 (Version 1)
Quarter: 2014Q4

REPORT INFORMATION
  Report Type: Spontaneous
  Country: TR (occurrence: None)
  Receive Date: 20141107
  Receipt Date: 20141107
  Transmission Date: 20150529
  Serious: Yes (Hospitalization)
  Sender: FDA-Public Use
  Company Number: FK201404750

PATIENT
  Age: 37 Year
  Sex: Male

DRUGS (1)
  1. METHYLPREDNISOLONE (MANUFACTUER UKNOWN) (METHYLPREDNISOLONE SODIUM) [Suspect]
     Active Substance: METHYLPREDNISOLONE
     Indication: PRODUCT USED FOR UNKNOWN INDICATION
     Route: 008

REACTIONS (7)
  - Procedural complication [None]
  - Headache [None]
  - Off label use [None]
  - Pneumocephalus [None]
  - Chest pain [None]
  - Pulmonary embolism [None]
  - Pneumorrhachis [None]
